FAERS Safety Report 4398674-7 (Version None)
Quarter: 2004Q3

REPORT INFORMATION
  Report Type: 
  Country: None (occurrence: None)
  Receive Date: 20040715
  Receipt Date: 20040708
  Transmission Date: 20050211
  Serious: Yes (Other)
  Sender: FDA-Public Use
  Company Number: PHEH2004US07353

PATIENT
  Age: 41 Year
  Sex: Female
  Weight: 60 kg

DRUGS (3)
  1. ZELNORM [Suspect]
     Indication: IRRITABLE BOWEL SYNDROME
     Dosage: 6 MG, BID
     Route: 048
     Dates: start: 20040301, end: 20040501
  2. NEXIUM [Concomitant]
  3. TOTAL LEAN DIETARY SUPPLEMENT [Concomitant]

REACTIONS (9)
  - ABDOMINAL DISTENSION [None]
  - ABDOMINAL PAIN [None]
  - CARCINOMA [None]
  - CONSTIPATION [None]
  - FEELING ABNORMAL [None]
  - HEPATIC STEATOSIS [None]
  - LIVER DISORDER [None]
  - LOCAL SWELLING [None]
  - VOMITING [None]
